FAERS Safety Report 6622296-8 (Version None)
Quarter: 2010Q1

REPORT INFORMATION
  Report Type: 
  Country: None (occurrence: None)
  Receive Date: 20100310
  Receipt Date: 20100223
  Transmission Date: 20100710
  Serious: Yes (Hospitalization, Other)
  Sender: FDA-Public Use
  Company Number: US-ELI_LILLY_AND_COMPANY-US201003000038

PATIENT
  Sex: Female

DRUGS (19)
  1. FORTEO [Suspect]
     Indication: OSTEOPOROSIS
     Dosage: 20 UG, DAILY (1/D)
     Route: 065
     Dates: start: 20091201, end: 20100101
  2. ASPIRIN [Concomitant]
     Dosage: 81 MG, DAILY (1/D)
  3. ATENOLOL [Concomitant]
     Indication: BLOOD PRESSURE
     Dosage: UNK, DAILY (1/D)
     Route: 065
  4. CALCIUM W/VITAMIN D /00188401/ [Concomitant]
     Dosage: 1200 MG, 2/D
  5. RESTASIS [Concomitant]
     Dosage: UNK, 2/D
     Route: 065
  6. HYDRALAZINE HCL [Concomitant]
     Dosage: UNK, 4/D
     Route: 065
  7. FOSAMAX [Concomitant]
     Dosage: UNK, WEEKLY (1/W)
     Route: 065
  8. ALBUTEROL SULFATE AND IPRATROPIUM BROMIDE [Concomitant]
     Indication: RESPIRATORY DISORDER
     Dosage: UNK, UNKNOWN
     Route: 065
  9. GABAPENTIN [Concomitant]
     Dosage: UNK, 2/D
     Route: 065
  10. ZETIA [Concomitant]
     Dosage: 10 MG, DAILY (1/D)
     Route: 065
  11. ZOLOFT [Concomitant]
     Dosage: UNK, DAILY (1/D)
     Route: 065
  12. LISINOPRIL [Concomitant]
     Dosage: UNK, DAILY (1/D)
     Route: 065
  13. LEVOTHYROXINE [Concomitant]
     Indication: THYROID DISORDER
     Dosage: 100 MG, UNKNOWN
     Route: 065
  14. ISOSORBIDE [Concomitant]
     Dosage: 60 MG, DAILY (1/D)
     Route: 065
  15. TRICOR [Concomitant]
     Dosage: 145 MG, DAILY (1/D)
     Route: 065
  16. DIGOXIN [Concomitant]
     Indication: CARDIAC DISORDER
     Dosage: UNK, DAILY (1/D)
     Route: 065
  17. FISH OIL [Concomitant]
     Indication: CARDIAC DISORDER
     Dosage: 1200 MG, UNKNOWN
  18. NOVOLIN 70/30 [Concomitant]
     Dosage: 20 IU, 2/D
     Route: 065
  19. JANUVIA [Concomitant]
     Dosage: 50 MG, DAILY (1/D)
     Route: 065

REACTIONS (7)
  - CARDIAC FAILURE CONGESTIVE [None]
  - CHRONIC OBSTRUCTIVE PULMONARY DISEASE [None]
  - IMPAIRED HEALING [None]
  - MALAISE [None]
  - PNEUMONIA [None]
  - PULMONARY OEDEMA [None]
  - VISUAL ACUITY REDUCED [None]
